FAERS Safety Report 6282264-5 (Version None)
Quarter: 2009Q3

REPORT INFORMATION
  Report Type: 
  Country: None (occurrence: None)
  Receive Date: 20090724
  Receipt Date: 20090710
  Transmission Date: 20100115
  Serious: Yes (Death)
  Sender: FDA-Public Use
  Company Number: NL-NAPPMUNDI-GBR-2009-0005349

PATIENT
  Sex: Male

DRUGS (5)
  1. OXYCONTIN [Suspect]
     Indication: PAIN
     Dosage: 5 MG, TID
     Route: 065
     Dates: start: 20080121
  2. ACETYLSALICYLIC ACID [Concomitant]
     Dosage: 80 MG, DAILY
     Route: 065
  3. COVERSYL                           /00790701/ [Concomitant]
     Dosage: 2 MG, DAILY
     Route: 065
  4. METOPROLOL SUCCINATE [Concomitant]
     Dosage: 50 MG, DAILY
     Route: 065
  5. PROMOCARD [Concomitant]
     Dosage: 60 MG, DAILY
     Route: 065

REACTIONS (1)
  - DEATH [None]
